FAERS Safety Report 6984411 (Version 5)
Quarter: 2013Q4

REPORT INFORMATION
  Report Type: Spontaneous
  Country: FR (occurrence: FR)
  Receive Date: 20090501
  Receipt Date: 20131101
  Transmission Date: 20140711
  Serious: Yes (Hospitalization, Other)
  Sender: FDA-Public Use
  Company Number: FR-ALEXION-A200800182

PATIENT
  Age: 42 Year
  Sex: Female
  Weight: 54 kg

DRUGS (25)
  1. SOLIRIS 300MG [Suspect]
     Indication: HAEMOLYTIC URAEMIC SYNDROME
     Dosage: 900 MG, QW
     Route: 042
     Dates: start: 20080708, end: 20080731
  2. SOLIRIS 300MG [Suspect]
     Indication: OFF LABEL USE
     Dosage: 1200 MG, Q2W
     Route: 042
  3. LUTENYL [Suspect]
     Dosage: UNK
     Route: 048
     Dates: end: 20080723
  4. AMLOR [Suspect]
     Indication: HYPERTENSION
     Dosage: 5 MG, QD
     Dates: start: 20080630, end: 20080704
  5. AMLOR [Suspect]
     Dosage: 10 MG, QD
     Dates: start: 20080704, end: 20080723
  6. BACTRIM [Suspect]
     Dosage: 0.5 DF, QD
     Route: 048
  7. BACTRIM [Suspect]
     Dosage: 4 DF, QD
     Route: 048
     Dates: start: 20080616, end: 20080715
  8. RAPAMUNE [Concomitant]
     Indication: PROPHYLAXIS AGAINST TRANSPLANT REJECTION
     Dosage: 2 MG, QD
     Route: 048
  9. RAPAMUNE [Concomitant]
     Dosage: 3 MG, QD
     Route: 048
     Dates: start: 20080604, end: 20080618
  10. RAPAMUNE [Concomitant]
     Dosage: 4 MG, QD
     Dates: start: 20080618
  11. MYFORTIC [Concomitant]
     Indication: PROPHYLAXIS AGAINST TRANSPLANT REJECTION
     Dosage: 720 MG, BID
  12. CORTANCYL [Concomitant]
     Indication: PROPHYLAXIS AGAINST TRANSPLANT REJECTION
     Dosage: 60 MG, QD
     Route: 048
     Dates: end: 20080723
  13. CORTANCYL [Concomitant]
     Dosage: 30 MG, QD
     Route: 048
     Dates: start: 20080723
  14. TAHOR [Concomitant]
     Indication: HYPERCHOLESTEROLAEMIA
     Dosage: 40 DF, QD
     Route: 048
     Dates: start: 20080530
  15. DEROXAT [Concomitant]
     Dosage: 20 MG, QD
     Route: 048
  16. INEXIUM [Concomitant]
     Dosage: 20 DF, QD
     Route: 048
     Dates: start: 20080611
  17. SODIUM BICARBONATE [Concomitant]
     Indication: ACIDOSIS
     Dosage: 4 G, QD
     Route: 048
     Dates: end: 20080715
  18. SODIUM BICARBONATE [Concomitant]
     Dosage: 6 G, QD
     Route: 048
     Dates: start: 20080715
  19. ARANESP [Concomitant]
     Indication: ANAEMIA
     Dosage: 60 ?G, QW
     Route: 058
  20. CIFLOX [Concomitant]
     Indication: PROPHYLAXIS
     Dosage: 500 MG, QD
     Route: 048
     Dates: start: 20080708, end: 20080715
  21. ROVALCYTE [Concomitant]
     Indication: ORAL CANDIDIASIS
     Dosage: 450 Q2DAYS
     Route: 048
     Dates: start: 20080702
  22. STILNOX [Concomitant]
     Dosage: 1 DF, QD
     Route: 048
  23. KALEORID [Concomitant]
     Dosage: 100 DF, QD
     Dates: start: 20080715
  24. COTRIMOXAZOLE [Concomitant]
     Dosage: UNK
  25. CONTRACEPTIVES NOS [Concomitant]
     Dosage: UNK

REACTIONS (11)
  - Haemolytic uraemic syndrome [Recovered/Resolved]
  - Condition aggravated [Recovered/Resolved]
  - Chest pain [Recovered/Resolved]
  - Renal impairment [Unknown]
  - Haemolysis [Unknown]
  - Oedema [Recovered/Resolved]
  - Anaemia [Not Recovered/Not Resolved]
  - Haemoglobin decreased [Not Recovered/Not Resolved]
  - Headache [Recovered/Resolved]
  - Metrorrhagia [Recovered/Resolved]
  - Off label use [Unknown]
